FAERS Safety Report 24981226 (Version 1)
Quarter: 2025Q1

REPORT INFORMATION
  Report Type: Spontaneous
  Country: PT (occurrence: PT)
  Receive Date: 20250218
  Receipt Date: 20250218
  Transmission Date: 20250409
  Serious: Yes (Other)
  Sender: pharmaAND
  Company Number: PT-Pharmaand-2025000125

PATIENT
  Sex: Male

DRUGS (1)
  1. PEGASYS [Suspect]
     Active Substance: PEGINTERFERON ALFA-2A
     Indication: Polycythaemia vera

REACTIONS (6)
  - Thrombocytosis [Unknown]
  - Neutrophilia [Unknown]
  - Polycythaemia [Unknown]
  - Leukocytosis [Unknown]
  - Therapy interrupted [Recovered/Resolved]
  - Product availability issue [Recovered/Resolved]
